FAERS Safety Report 4996433-5 (Version None)
Quarter: 2006Q2

REPORT INFORMATION
  Report Type: 
  Country: None (occurrence: None)
  Receive Date: 20060509
  Receipt Date: 20060418
  Transmission Date: 20061013
  Serious: Yes (Hospitalization)
  Sender: FDA-Public Use
  Company Number: IN-GILEAD-2006-0009473

PATIENT
  Age: 30 Year
  Sex: Male
  Weight: 56.5 kg

DRUGS (6)
  1. EMTRICITABINE [Suspect]
     Indication: HIV INFECTION
     Route: 048
     Dates: start: 20060330, end: 20060418
  2. DIDANOSINE [Suspect]
     Indication: HIV INFECTION
     Route: 048
     Dates: start: 20060330, end: 20060418
  3. EFAVIRENZ [Suspect]
     Indication: HIV INFECTION
     Route: 048
     Dates: start: 20060330, end: 20060418
  4. CYCLOPHOSPHAMIDE [Concomitant]
  5. ANTI-TUBERCULOSIS PRESCRIPTION [Concomitant]
     Indication: TUBERCULOSIS
     Dates: start: 20060315
  6. TRIMETHOPRIM + SULFAMETHOXAZOLE [Concomitant]

REACTIONS (9)
  - ASCITES [None]
  - CHILLS [None]
  - HEPATITIS [None]
  - HEPATOSPLENOMEGALY [None]
  - HYPOPHOSPHATAEMIA [None]
  - PANCYTOPENIA [None]
  - PLEURAL EFFUSION [None]
  - PYREXIA [None]
  - VOMITING [None]
